FAERS Safety Report 7043038-0 (Version None)
Quarter: 2010Q4

REPORT INFORMATION
  Report Type: 
  Country: None (occurrence: None)
  Receive Date: 20101007
  Receipt Date: 20100913
  Transmission Date: 20110411
  Serious: Yes (Death, Life-Threatening, Hospitalization)
  Sender: FDA-Public Use
  Company Number: 20109349

PATIENT
  Age: 56 Year
  Sex: Female

DRUGS (2)
  1. LIORESAL [Suspect]
     Indication: MUSCLE SPASTICITY
     Dosage: SEE B5 MCG DAILY, INTRATHECAL
     Route: 037
  2. MORPHINE [Concomitant]

REACTIONS (2)
  - MULTIPLE SCLEROSIS [None]
  - RESPIRATORY FAILURE [None]
